FAERS Safety Report 6563510-7 (Version None)
Quarter: 2010Q1

REPORT INFORMATION
  Report Type: 
  Country: None (occurrence: None)
  Receive Date: 20100130
  Receipt Date: 20091210
  Transmission Date: 20100710
  Serious: No
  Sender: FDA-Public Use
  Company Number: US-ABBOTT-09P-163-0614482-00

PATIENT
  Sex: Female
  Weight: 60.382 kg

DRUGS (3)
  1. HUMIRA [Suspect]
     Indication: CROHN'S DISEASE
     Route: 058
     Dates: start: 20090201, end: 20090901
  2. HUMIRA [Suspect]
     Route: 058
     Dates: start: 20090901, end: 20091201
  3. IMURAN [Concomitant]
     Indication: DRUG USE FOR UNKNOWN INDICATION

REACTIONS (3)
  - COLITIS [None]
  - DIARRHOEA [None]
  - NAUSEA [None]
